FAERS Safety Report 8834688 (Version 3)
Quarter: 2014Q3

REPORT INFORMATION
  Report Type: Spontaneous
  Country: US (occurrence: US)
  Receive Date: 20121010
  Receipt Date: 20140828
  Transmission Date: 20150326
  Serious: Yes (Hospitalization, Other)
  Sender: FDA-Public Use
  Company Number: US-009507513-2009-200154-NL

PATIENT
  Sex: Female
  Weight: 104.33 kg

DRUGS (1)
  1. NUVARING [Suspect]
     Active Substance: ETHINYL ESTRADIOL\ETONOGESTREL
     Indication: CONTRACEPTION
     Dosage: CONTINUING: NO
     Route: 067
     Dates: start: 200609, end: 20070706

REACTIONS (8)
  - Pulmonary embolism [Recovered/Resolved]
  - Cholecystectomy [Recovered/Resolved]
  - Pregnancy [Recovered/Resolved]
  - Thrombophlebitis superficial [Recovered/Resolved]
  - Cholelithiasis [Unknown]
  - Deep vein thrombosis [Unknown]
  - Blood cholesterol increased [Unknown]
  - Cholecystitis chronic [Unknown]

NARRATIVE: CASE EVENT DATE: 20070524
